FAERS Safety Report 8175098-8 (Version None)
Quarter: 2012Q1

REPORT INFORMATION
  Report Type: 
  Country: None (occurrence: None)
  Receive Date: 20120229
  Receipt Date: 20120217
  Transmission Date: 20120608
  Serious: Yes (Hospitalization, Other)
  Sender: FDA-Public Use
  Company Number: IT-CELGENEUS-083-21880-11091972

PATIENT
  Sex: Female
  Weight: 50 kg

DRUGS (8)
  1. REVLIMID [Suspect]
     Indication: MULTIPLE MYELOMA
     Dosage: 25 MILLIGRAM
     Route: 048
     Dates: start: 20110219, end: 20110810
  2. DEXAMETHASONE [Concomitant]
     Indication: ANTIINFLAMMATORY THERAPY
     Dosage: 22.8571 MILLIGRAM
     Route: 048
     Dates: start: 20110818
  3. REVLIMID [Suspect]
     Route: 048
     Dates: end: 20111007
  4. DEXAMETHASONE [Concomitant]
     Indication: MULTIPLE MYELOMA
     Dosage: 21.3333 MILLIGRAM
     Route: 048
     Dates: start: 20110219, end: 20110817
  5. TRIMETHOPRIM + SULFAMETHOXAZOLE [Concomitant]
     Dosage: 228.5714 MILLIGRAM
     Route: 048
     Dates: start: 20110219
  6. ZOMETA [Suspect]
     Indication: PROPHYLAXIS
     Route: 041
     Dates: start: 20111007
  7. ZOMETA [Suspect]
     Dosage: .0333 DOSAGE FORMS
     Route: 041
     Dates: start: 20111018
  8. REVLIMID [Suspect]
     Dosage: 25 MILLIGRAM
     Route: 048
     Dates: start: 20110818, end: 20110907

REACTIONS (5)
  - BONE PAIN [None]
  - SCIATIC NERVE NEUROPATHY [None]
  - PERIPHERAL MOTOR NEUROPATHY [None]
  - HYPOCALCAEMIA [None]
  - MYOSITIS [None]
